FAERS Safety Report 26174133 (Version 1)
Quarter: 2025Q4

REPORT INFORMATION
  Report Type: Spontaneous
  Country: GB (occurrence: GB)
  Receive Date: 20251218
  Receipt Date: 20251218
  Transmission Date: 20260117
  Serious: Yes (Disabling, Other)
  Sender: TORRENT PHARMA INC.
  Company Number: None

PATIENT
  Age: 34 Year
  Sex: Female

DRUGS (3)
  1. TOPIRAMATE [Suspect]
     Active Substance: TOPIRAMATE
     Indication: Migraine
     Dosage: 50 MG ONCE A DAY - INCREASED OVER TIME TO 100MG ONCE A DAY.
     Route: 065
     Dates: start: 20220112, end: 20250118
  2. DESOGESTREL [Concomitant]
     Active Substance: DESOGESTREL
     Indication: Migraine
     Dosage: UNKNOWN
     Route: 065
     Dates: start: 2018
  3. MEBEVERINE [Concomitant]
     Active Substance: MEBEVERINE
     Indication: Irritable bowel syndrome
     Dosage: UNKNOWN
     Route: 065

REACTIONS (3)
  - Granuloma annulare [Recovering/Resolving]
  - Psychiatric symptom [Unknown]
  - Hand deformity [Unknown]

NARRATIVE: CASE EVENT DATE: 20220801
